FAERS Safety Report 10215456 (Version 2)
Quarter: 2014Q2

REPORT INFORMATION
  Report Type: Report from Study
  Country: JP (occurrence: JP)
  Receive Date: 20140604
  Receipt Date: 20140604
  Transmission Date: 20141212
  Serious: Yes (Hospitalization, Disabling, Other)
  Sender: FDA-Public Use
  Company Number: JP-ROCHE-627135

PATIENT
  Age: 56 Year
  Sex: Male

DRUGS (12)
  1. RITUXIMAB [Suspect]
     Indication: B-CELL LYMPHOMA
     Dosage: 250 MG/M2, UNK
     Route: 042
  2. RITUXIMAB [Suspect]
     Dosage: 250 MG/M2, UNK
     Route: 042
  3. ZEVALIN [Suspect]
     Indication: B-CELL LYMPHOMA
     Route: 042
  4. ZEVALIN [Suspect]
     Route: 042
  5. FLUDARA [Suspect]
     Indication: B-CELL LYMPHOMA
     Route: 065
  6. FLOMOX (JAPAN) [Suspect]
     Indication: PRODUCT USED FOR UNKNOWN INDICATION
     Route: 065
  7. BAKTAR [Concomitant]
     Indication: PROPHYLAXIS
     Route: 048
     Dates: start: 20081023
  8. SOLANTAL [Concomitant]
     Route: 065
     Dates: start: 20130709
  9. ASVERIN [Concomitant]
     Route: 065
     Dates: start: 20130709
  10. TAVEGYL [Concomitant]
     Route: 065
     Dates: start: 20130709
  11. LOXOPROFEN [Concomitant]
     Route: 065
     Dates: start: 20130709
  12. CEPHARANTHIN [Concomitant]
     Route: 065
     Dates: start: 20130722

REACTIONS (4)
  - Neutrophil count decreased [Recovered/Resolved]
  - Cellulitis [Unknown]
  - Autoimmune haemolytic anaemia [Recovered/Resolved]
  - Lymphocyte count decreased [Recovering/Resolving]
